FAERS Safety Report 21774355 (Version 1)
Quarter: 2022Q4

REPORT INFORMATION
  Report Type: Spontaneous
  Country: ES (occurrence: ES)
  Receive Date: 20221224
  Receipt Date: 20221224
  Transmission Date: 20230113
  Serious: Yes (Hospitalization)
  Sender: FDA-Public Use
  Company Number: ES-STRIDES ARCOLAB LIMITED-2022SP017149

PATIENT
  Age: 54 Year
  Sex: Male

DRUGS (3)
  1. OLANZAPINE [Suspect]
     Active Substance: OLANZAPINE
     Indication: Anxiety
     Dosage: UNK
     Route: 065
  2. OLANZAPINE [Suspect]
     Active Substance: OLANZAPINE
     Indication: Agoraphobia
  3. OLANZAPINE [Suspect]
     Active Substance: OLANZAPINE
     Indication: Somatic symptom disorder

REACTIONS (2)
  - Histrionic personality disorder [Recovered/Resolved]
  - Obsessive-compulsive personality disorder [Recovered/Resolved]
